FAERS Safety Report 16802361 (Version 1)
Quarter: 2019Q3

REPORT INFORMATION
  Report Type: Spontaneous
  Country: CA (occurrence: CA)
  Receive Date: 20190912
  Receipt Date: 20190912
  Transmission Date: 20191005
  Serious: Yes (Other)
  Sender: FDA-Public Use
  Company Number: CA-ACTELION-A-NJ2019-195259

PATIENT
  Sex: Female
  Weight: 66 kg

DRUGS (11)
  1. HYDROXYCHLOROQUINE [Concomitant]
     Active Substance: HYDROXYCHLOROQUINE
  2. TRACLEER [Suspect]
     Active Substance: BOSENTAN
     Indication: PULMONARY ARTERIAL HYPERTENSION
     Dosage: 125 MG, BID
     Route: 048
     Dates: start: 20110829
  3. PROLIA [Concomitant]
     Active Substance: DENOSUMAB
  4. VITAMIN D [Concomitant]
     Active Substance: VITAMIN D NOS
  5. DALTEPARIN [Concomitant]
     Active Substance: DALTEPARIN
  6. PREDNISONE. [Concomitant]
     Active Substance: PREDNISONE
  7. AMLODIPINE [Concomitant]
     Active Substance: AMLODIPINE BESYLATE
  8. CALCIUM [Concomitant]
     Active Substance: CALCIUM
  9. MYCOPHENOLATE [Concomitant]
     Active Substance: MYCOPHENOLIC ACID
  10. SYNTHROID [Concomitant]
     Active Substance: LEVOTHYROXINE SODIUM
  11. RABEPRAZOLE [Concomitant]
     Active Substance: RABEPRAZOLE

REACTIONS (1)
  - Cerebrovascular accident [Unknown]

NARRATIVE: CASE EVENT DATE: 2014
